FAERS Safety Report 7819199-X (Version None)
Quarter: 2011Q4

REPORT INFORMATION
  Report Type: 
  Country: None (occurrence: None)
  Receive Date: 20111018
  Receipt Date: 20111010
  Transmission Date: 20120403
  Serious: Yes (Other)
  Sender: FDA-Public Use
  Company Number: JP-BRISTOL-MYERS SQUIBB COMPANY-15918741

PATIENT
  Age: 65 Year
  Sex: Male

DRUGS (2)
  1. METFORMIN HCL [Suspect]
     Route: 048
     Dates: start: 20110507, end: 20110610
  2. METFORMIN HCL [Concomitant]

REACTIONS (1)
  - HEPATITIS ACUTE [None]
